FAERS Safety Report 7114412-9 (Version None)
Quarter: 2010Q4

REPORT INFORMATION
  Report Type: 
  Country: None (occurrence: None)
  Receive Date: 20101119
  Receipt Date: 20101117
  Transmission Date: 20110411
  Serious: Yes (Other)
  Sender: FDA-Public Use
  Company Number: JP-PFIZER INC-2010144183

PATIENT
  Age: 70 Year
  Sex: Male

DRUGS (8)
  1. VORICONAZOLE [Suspect]
     Indication: ULCERATIVE KERATITIS
     Dosage: UNK
     Route: 047
     Dates: start: 20060524
  2. MICAFUNGIN [Concomitant]
     Dosage: UNK
     Route: 047
     Dates: start: 20060403
  3. GATIFLOXACIN [Concomitant]
     Dosage: UNK
     Dates: start: 20060403
  4. CEFMENOXIME [Concomitant]
     Dosage: UNK
     Dates: start: 20060403
  5. FLUOROMETHOLONE [Concomitant]
     Dosage: UNK
     Dates: start: 20060403
  6. VALACICLOVIR [Concomitant]
     Dosage: UNK
     Route: 048
     Dates: start: 20060403, end: 20060426
  7. ITRACONAZOLE [Concomitant]
     Dosage: 200 MG/DAY
  8. ATROPINE OPHTHALMIC [Concomitant]

REACTIONS (1)
  - CORNEAL THINNING [None]
